FAERS Safety Report 6395158-1 (Version None)
Quarter: 2009Q4

REPORT INFORMATION
  Report Type: 
  Country: None (occurrence: None)
  Receive Date: 20091009
  Receipt Date: 20091005
  Transmission Date: 20100525
  Serious: Yes (Death)
  Sender: FDA-Public Use
  Company Number: JP-ASTRAZENECA-2009SE17996

PATIENT
  Age: 69 Year
  Sex: Male

DRUGS (1)
  1. OMEPRAL [Suspect]
     Dosage: DOSE UNKNOWN
     Route: 048
     Dates: start: 20080201, end: 20080301

REACTIONS (1)
  - AGRANULOCYTOSIS [None]
